FAERS Safety Report 4571234-0 (Version None)
Quarter: 2005Q1

REPORT INFORMATION
  Report Type: 
  Country: None (occurrence: None)
  Receive Date: 20050202
  Receipt Date: 20050117
  Transmission Date: 20050727
  Serious: Yes (Hospitalization)
  Sender: FDA-Public Use
  Company Number: US014599

PATIENT
  Age: 73 Year
  Sex: Female
  Weight: 61.2356 kg

DRUGS (2)
  1. ACTIQ [Suspect]
     Indication: PAIN
     Dosage: 600 UG BUCCAL
     Route: 002
     Dates: start: 20041115, end: 20041122
  2. ACTIQ [Suspect]
     Indication: PELVIC FRACTURE
     Dosage: 600 UG BUCCAL
     Route: 002
     Dates: start: 20041115, end: 20041122

REACTIONS (8)
  - ABNORMAL BEHAVIOUR [None]
  - AGGRESSION [None]
  - ANGER [None]
  - DRUG DEPENDENCE [None]
  - GASTROINTESTINAL DISORDER [None]
  - HYPERSOMNIA [None]
  - SOMNOLENCE [None]
  - UNEVALUABLE EVENT [None]
